FAERS Safety Report 7643095-4 (Version None)
Quarter: 2011Q3

REPORT INFORMATION
  Report Type: 
  Country: None (occurrence: None)
  Receive Date: 20110728
  Receipt Date: 20110719
  Transmission Date: 20111222
  Serious: Yes (Other)
  Sender: FDA-Public Use
  Company Number: US-ASTRAZENECA-2011SE17520

PATIENT
  Age: 84 Year
  Sex: Female
  Weight: 114.8 kg

DRUGS (7)
  1. PULMICORT [Concomitant]
     Indication: ASTHMA
     Route: 055
     Dates: start: 20080101
  2. LASIX [Concomitant]
     Dates: start: 20100601
  3. LISINOPRIL AND HYDROCHLOROTHIAZIDE [Suspect]
     Indication: HYPERTENSION
     Dosage: 20/12.5 MG /DAY
     Route: 048
     Dates: start: 20080101
  4. ALBUTEROL SULFATE AUTOHALER [Concomitant]
     Indication: ASTHMA
     Dates: start: 20080101
  5. ARIMIDEX [Suspect]
     Indication: METASTASES TO BONE
     Route: 048
     Dates: start: 20080114, end: 20100413
  6. COUMADIN [Concomitant]
     Indication: THROMBOSIS PROPHYLAXIS
     Dates: start: 20080101
  7. ARIMIDEX [Suspect]
     Indication: BREAST CANCER
     Route: 048
     Dates: start: 20080114, end: 20100413

REACTIONS (5)
  - HYPOXIA [None]
  - PNEUMONIA [None]
  - LUNG CANCER METASTATIC [None]
  - DYSPNOEA [None]
  - CHRONIC OBSTRUCTIVE PULMONARY DISEASE [None]
